FAERS Safety Report 13659380 (Version 4)
Quarter: 2017Q2

REPORT INFORMATION
  Report Type: Spontaneous
  Country: IL (occurrence: IL)
  Receive Date: 20170616
  Receipt Date: 20170616
  Transmission Date: 20170830
  Serious: Yes (Disabling)
  Sender: FDA-Public Use
  Company Number: IL-INFO-000411

PATIENT
  Age: 75 Year
  Sex: Female

DRUGS (1)
  1. ZOLEDRONIC ACID [Suspect]
     Active Substance: ZOLEDRONIC ACID
     Indication: OSTEOPOROSIS
     Route: 042

REACTIONS (4)
  - Vomiting [Unknown]
  - Syncope [Unknown]
  - Rheumatoid arthritis [Not Recovered/Not Resolved]
  - Pyrexia [Unknown]
